FAERS Safety Report 9253645 (Version 2)
Quarter: 2013Q3

REPORT INFORMATION
  Report Type: Spontaneous
  Country: US (occurrence: US)
  Receive Date: 20130425
  Receipt Date: 20130705
  Transmission Date: 20140515
  Serious: Yes (Disabling)
  Sender: FDA-Public Use
  Company Number: US-ASTRAZENECA-2013SE27615

PATIENT
  Sex: Female
  Weight: 87.1 kg

DRUGS (29)
  1. NEXIUM [Suspect]
     Indication: DYSPEPSIA
     Route: 048
     Dates: start: 20031217
  2. NEXIUM [Suspect]
     Indication: DYSPEPSIA
     Dosage: ONE OR TWO
     Route: 048
  3. NEXIUM [Suspect]
     Indication: DYSPEPSIA
     Dosage: TWO, A DAY
     Route: 048
  4. PREVACID [Concomitant]
     Dates: start: 20040611
  5. FENOPROFEN [Concomitant]
  6. TORADOL [Concomitant]
     Route: 048
  7. NIZORAL [Concomitant]
  8. NIZORAL [Concomitant]
  9. ANSAID [Concomitant]
  10. CEPHALEXIN [Concomitant]
     Indication: INFECTION
  11. NOREL PLUS [Concomitant]
  12. AMOXIL [Concomitant]
  13. PROMETHAZINE [Concomitant]
     Indication: NAUSEA
  14. PROMETHAZINE [Concomitant]
     Indication: VOMITING
  15. PROPOXYPHENE/APAP [Concomitant]
     Dosage: 100/650, TAKE ONE EVERY SIX HOURS IF NEEDED
  16. ADVAIR DISKUS [Concomitant]
     Dosage: 250-50 MCG/DOSE MISCELLANNEOUS 1 PUFF EVERY 12 HRS
     Dates: start: 20090817
  17. SOMA [Concomitant]
  18. LORCET [Concomitant]
     Indication: PAIN
     Dosage: 10/650 MG, THREE TIME A DAY AS NEEDED
  19. LORCET [Concomitant]
     Indication: PAIN
     Dosage: 10/650 MG, TWO TIMES A DAY
     Route: 048
     Dates: start: 20040813
  20. VALIUM [Concomitant]
  21. SINGULAIR [Concomitant]
     Dates: start: 20050308
  22. LISINOPRIL [Concomitant]
     Dates: start: 20090318
  23. CARISOPRODOL [Concomitant]
     Dates: start: 20031217
  24. ACIPHEX [Concomitant]
     Dates: start: 20081021
  25. NAPROXEN [Concomitant]
     Route: 048
     Dates: start: 20040326
  26. OMEPRAZOLE [Concomitant]
     Route: 048
     Dates: start: 20110411
  27. ALLEGRA [Concomitant]
     Route: 048
     Dates: start: 20040611
  28. ALPRAZOLAM [Concomitant]
     Dates: start: 20041111
  29. CELEBREX [Concomitant]

REACTIONS (5)
  - Musculoskeletal disorder [Unknown]
  - Gastric disorder [Unknown]
  - Bone density decreased [Unknown]
  - Osteoporosis [Unknown]
  - Multiple fractures [Unknown]
